FAERS Safety Report 4357799-2 (Version None)
Quarter: 2004Q2

REPORT INFORMATION
  Report Type: 
  Country: None (occurrence: None)
  Receive Date: 20040513
  Receipt Date: 20020904
  Transmission Date: 20050107
  Serious: Yes (Hospitalization, Disabling, Other)
  Sender: FDA-Public Use
  Company Number: US-MERCK-0209USA00437

PATIENT
  Age: 85 Year
  Sex: Female
  Weight: 48 kg

DRUGS (11)
  1. TYLENOL (CAPLET) [Concomitant]
     Route: 065
     Dates: start: 19930101
  2. ATENOLOL [Concomitant]
     Route: 065
  3. CAPTOPRIL [Concomitant]
     Route: 065
  4. PREMPRO [Concomitant]
     Route: 065
  5. HYDRODIURIL [Concomitant]
     Route: 048
  6. HYDROXYCHLOROQUINE SULFATE [Concomitant]
     Route: 065
  7. CLARITIN [Concomitant]
     Route: 065
  8. POTASSIUM (UNSPECIFIED) [Concomitant]
     Route: 065
  9. VIOXX [Suspect]
     Indication: RHEUMATOID ARTHRITIS
     Route: 048
     Dates: start: 20000701, end: 20000801
  10. SALSALATE [Concomitant]
     Route: 065
  11. SULFASALAZINE [Concomitant]
     Route: 065

REACTIONS (17)
  - ATRIAL FIBRILLATION [None]
  - BLOOD GLUCOSE INCREASED [None]
  - BLOOD PRESSURE INCREASED [None]
  - CEREBROVASCULAR ACCIDENT [None]
  - CONVULSION [None]
  - DRUG LEVEL FLUCTUATING [None]
  - FALL [None]
  - FEMORAL NECK FRACTURE [None]
  - GASTROINTESTINAL ULCER HAEMORRHAGE [None]
  - GRAND MAL CONVULSION [None]
  - INJURY [None]
  - MENTAL IMPAIRMENT [None]
  - NAUSEA [None]
  - OSTEOPENIA [None]
  - SINUS ARRHYTHMIA [None]
  - VASCULAR CALCIFICATION [None]
  - VOMITING [None]
